FAERS Safety Report 25097157 (Version 1)
Quarter: 2025Q1

REPORT INFORMATION
  Report Type: Spontaneous
  Country: US (occurrence: US)
  Receive Date: 20250319
  Receipt Date: 20250319
  Transmission Date: 20250408
  Serious: No
  Sender: BAUSCH AND LOMB
  Company Number: US-BAUSCH-BL-2016-008335

PATIENT
  Age: 74 Year
  Sex: Female
  Weight: 54.43 kg

DRUGS (11)
  1. PROLENSA [Suspect]
     Active Substance: BROMFENAC SODIUM
     Indication: Cataract operation
     Route: 047
     Dates: start: 20160229, end: 20160405
  2. GENTAMICIN SULFATE [Suspect]
     Active Substance: GENTAMICIN SULFATE
     Indication: Cataract operation
     Dosage: ONE DROP IN SURGICAL EYE FOUR TIMES A DAY FOR 7 DAYS AFTER SURGERY
     Route: 065
     Dates: start: 20160302
  3. DUREZOL [Suspect]
     Active Substance: DIFLUPREDNATE
     Indication: Cataract operation
     Dosage: ONE DROP IN SURGICAL THREE TIMES DAILY
     Route: 047
     Dates: start: 20160302
  4. ATENOLOL [Concomitant]
     Active Substance: ATENOLOL
     Indication: Hypertension
     Route: 048
  5. ADVAIR HFA [Concomitant]
     Active Substance: FLUTICASONE PROPIONATE\SALMETEROL XINAFOATE
     Indication: Asthma
     Route: 048
  6. LISINOPRIL [Concomitant]
     Active Substance: LISINOPRIL
     Indication: Hypertension
     Route: 048
  7. SINGULAIR [Concomitant]
     Active Substance: MONTELUKAST SODIUM
     Indication: Asthma
     Route: 048
  8. SIMVASTATIN [Concomitant]
     Active Substance: SIMVASTATIN
     Indication: Blood cholesterol abnormal
     Route: 048
  9. PREDNISONE [Concomitant]
     Active Substance: PREDNISONE
     Indication: Asthma
     Route: 048
  10. CALCIUM CARBONATE\CHOLECALCIFEROL [Concomitant]
     Active Substance: CALCIUM CARBONATE\CHOLECALCIFEROL
     Indication: Bone disorder
     Route: 048
  11. ICAPS [MINERALS NOS;VITAMINS NOS] [Concomitant]
     Indication: Macular degeneration
     Route: 048
     Dates: start: 201603

REACTIONS (3)
  - Urticaria [Recovering/Resolving]
  - Pruritus [Recovering/Resolving]
  - Swelling face [Recovering/Resolving]

NARRATIVE: CASE EVENT DATE: 20160306
